FAERS Safety Report 6501717-5 (Version None)
Quarter: 2009Q4

REPORT INFORMATION
  Report Type: 
  Country: None (occurrence: None)
  Receive Date: 20091127
  Receipt Date: 20090107
  Transmission Date: 20100525
  Serious: Yes (Other)
  Sender: FDA-Public Use
  Company Number: WAES 0901USA00889

PATIENT
  Age: 67 Year
  Sex: Female

DRUGS (4)
  1. FOSAMAX [Suspect]
     Indication: OSTEOPOROSIS
     Dosage: 70 MG/WKY/PO
     Route: 048
     Dates: start: 20051201, end: 20070626
  2. FOSAMAX PLUS D [Suspect]
     Dosage: 70 MG/2800 IU/PO
     Route: 048
     Dates: start: 20070724, end: 20080424
  3. CELEBREX [Concomitant]
  4. COZAAR [Concomitant]

REACTIONS (8)
  - ABSCESS JAW [None]
  - CARPAL TUNNEL SYNDROME [None]
  - HYPERTONIC BLADDER [None]
  - OSTEOMYELITIS ACUTE [None]
  - OSTEONECROSIS [None]
  - PAIN [None]
  - SLEEP DISORDER [None]
  - URINARY INCONTINENCE [None]
